FAERS Safety Report 5543021-8 (Version None)
Quarter: 2007Q4

REPORT INFORMATION
  Report Type: 
  Country: None (occurrence: None)
  Receive Date: 20071210
  Receipt Date: 20071128
  Transmission Date: 20080405
  Serious: Yes (Other)
  Sender: FDA-Public Use
  Company Number: US-PFIZER INC-2007101739

PATIENT
  Sex: Female
  Weight: 79.1 kg

DRUGS (13)
  1. CHANTIX [Suspect]
     Indication: SMOKING CESSATION THERAPY
     Route: 048
     Dates: start: 20071021, end: 20071101
  2. PREMARIN [Concomitant]
     Indication: MENOPAUSE
  3. CELEBREX [Concomitant]
  4. OMEPRAZOLE [Concomitant]
  5. TRICOR [Concomitant]
  6. MONTELUKAST SODIUM [Concomitant]
  7. ALLEGRA [Concomitant]
  8. ZYRTEC-D 12 HOUR [Concomitant]
  9. LISINOPRIL [Concomitant]
  10. GABAPENTIN [Concomitant]
  11. ACETYLSALICYLIC ACID SRT [Concomitant]
  12. DUONEB [Concomitant]
     Indication: ASTHMA
  13. ALBUTEROL [Concomitant]
     Indication: ASTHMA

REACTIONS (1)
  - BIPOLAR DISORDER [None]
